FAERS Safety Report 9416919 (Version 1)
Quarter: 2013Q3

REPORT INFORMATION
  Report Type: Report from Study
  Country: BR (occurrence: BR)
  Receive Date: 20130724
  Receipt Date: 20130724
  Transmission Date: 20140515
  Serious: Yes (Death)
  Sender: FDA-Public Use
  Company Number: BR-US-EMD SERONO, INC.-7225305

PATIENT
  Age: 49 Year
  Sex: Male

DRUGS (1)
  1. REBIF [Suspect]
     Indication: RELAPSING-REMITTING MULTIPLE SCLEROSIS
     Dates: start: 20070116, end: 20130617

REACTIONS (3)
  - Myocardial ischaemia [Fatal]
  - Myocardial infarction [Fatal]
  - Arrhythmia [Fatal]
